FAERS Safety Report 7370249-7 (Version None)
Quarter: 2011Q1

REPORT INFORMATION
  Report Type: 
  Country: None (occurrence: None)
  Receive Date: 20110323
  Receipt Date: 20110311
  Transmission Date: 20110831
  Serious: Yes (Other)
  Sender: FDA-Public Use
  Company Number: PHHY2011NO20193

PATIENT
  Age: 20 Year
  Sex: Male

DRUGS (1)
  1. RITALIN [Suspect]
     Indication: ATTENTION DEFICIT/HYPERACTIVITY DISORDER
     Dosage: UNK

REACTIONS (4)
  - PSYCHOTIC DISORDER [None]
  - WRONG DRUG ADMINISTERED [None]
  - SUICIDAL IDEATION [None]
  - TIC [None]
